FAERS Safety Report 11774259 (Version 1)
Quarter: 2015Q4

REPORT INFORMATION
  Report Type: Spontaneous
  Country: IT (occurrence: IT)
  Receive Date: 20151124
  Receipt Date: 20151124
  Transmission Date: 20160304
  Serious: Yes (Hospitalization)
  Sender: FDA-Public Use
  Company Number: IT-JNJFOC-20151119229

PATIENT
  Age: 71 Year
  Sex: Female

DRUGS (5)
  1. HALDOL DECANOATE [Suspect]
     Active Substance: HALOPERIDOL DECANOATE
     Indication: PERSECUTORY DELUSION
     Route: 030
     Dates: start: 201506
  2. EUTIROX [Concomitant]
     Active Substance: LEVOTHYROXINE SODIUM
     Indication: PRODUCT USED FOR UNKNOWN INDICATION
     Route: 065
  3. HALDOL DECANOATE [Suspect]
     Active Substance: HALOPERIDOL DECANOATE
     Indication: PSYCHOTIC DISORDER
     Route: 030
     Dates: start: 201506
  4. HALDOL DECANOATE [Suspect]
     Active Substance: HALOPERIDOL DECANOATE
     Indication: PERSECUTORY DELUSION
     Route: 030
     Dates: start: 20151015, end: 20151015
  5. HALDOL DECANOATE [Suspect]
     Active Substance: HALOPERIDOL DECANOATE
     Indication: PSYCHOTIC DISORDER
     Route: 030
     Dates: start: 20151015, end: 20151015

REACTIONS (5)
  - Bradyphrenia [Unknown]
  - Cognitive disorder [Unknown]
  - Generalised tonic-clonic seizure [Unknown]
  - Bradykinesia [Unknown]
  - Pneumonia [Unknown]

NARRATIVE: CASE EVENT DATE: 201509
